FAERS Safety Report 23487322 (Version 1)
Quarter: 2024Q1

REPORT INFORMATION
  Report Type: Spontaneous
  Country: US (occurrence: None)
  Receive Date: 20240205
  Receipt Date: 20240205
  Transmission Date: 20240410
  Serious: Yes (Other)
  Sender: FDA-Public Use
  Company Number: None

PATIENT
  Age: 54 Year
  Sex: Female
  Weight: 69.75 kg

DRUGS (1)
  1. LATANOPROST [Suspect]
     Active Substance: LATANOPROST
     Indication: Intraocular pressure test abnormal
     Dates: start: 20230412, end: 20240202

REACTIONS (6)
  - Palpitations [None]
  - Dyspnoea [None]
  - Eye pain [None]
  - Eyelid pain [None]
  - Photophobia [None]
  - Corneal reflex decreased [None]

NARRATIVE: CASE EVENT DATE: 20230819
